FAERS Safety Report 5283581-8 (Version None)
Quarter: 2007Q2

REPORT INFORMATION
  Report Type: 
  Country: None (occurrence: None)
  Receive Date: 20070402
  Receipt Date: 20070319
  Transmission Date: 20071010
  Serious: Yes (Hospitalization)
  Sender: FDA-Public Use
  Company Number: FR-ROCHE-488339

PATIENT
  Age: 51 Year
  Sex: Female

DRUGS (2)
  1. TICLID [Suspect]
     Route: 048
     Dates: start: 20070305, end: 20070310
  2. NITROGLYCERIN [Concomitant]
     Indication: ANGINA PECTORIS
     Route: 055
     Dates: start: 20070315

REACTIONS (3)
  - FACE OEDEMA [None]
  - PRURITUS [None]
  - RASH MACULO-PAPULAR [None]
